FAERS Safety Report 8762895 (Version 2)
Quarter: 2012Q4

REPORT INFORMATION
  Report Type: Spontaneous
  Country: US (occurrence: None)
  Receive Date: 20120824
  Receipt Date: 20121019
  Transmission Date: 20130627
  Serious: Yes (Hospitalization)
  Sender: FDA-Public Use
  Company Number: 2012-003007

PATIENT
  Age: 60 Year
  Sex: Male
  Weight: 66.7 kg

DRUGS (3)
  1. ASACOL HD [Suspect]
     Indication: COLITIS
     Route: 048
     Dates: start: 20120808, end: 20120817
  2. PANTOPRAZOLE (PANTOPRAZOLE) [Concomitant]
  3. URSODIOL (URSODEOXYCHOLIC ACID) [Concomitant]

REACTIONS (14)
  - Atrial fibrillation [None]
  - Pericarditis [None]
  - Diarrhoea [None]
  - Cardiac output decreased [None]
  - Dehydration [None]
  - Hypovolaemia [None]
  - Cardiac disorder [None]
  - Vomiting [None]
  - Pyrexia [None]
  - Nausea [None]
  - Fatigue [None]
  - Asthenia [None]
  - Malaise [None]
  - Heart rate increased [None]
